FAERS Safety Report 22540813 (Version 1)
Quarter: 2023Q2

REPORT INFORMATION
  Report Type: Spontaneous
  Country: GB (occurrence: GB)
  Receive Date: 20230609
  Receipt Date: 20230609
  Transmission Date: 20230721
  Serious: Yes (Hospitalization, Other)
  Sender: FDA-Public Use
  Company Number: GB-BAXTER-2023BAX021600

PATIENT
  Age: 62 Year
  Sex: Female
  Weight: 41 kg

DRUGS (25)
  1. PANTOPRAZOLE [Suspect]
     Active Substance: PANTOPRAZOLE
     Indication: Product used for unknown indication
     Dosage: 40 MG DILUTED IN 10 ML SODIUM CHLORIDE, TWICE DAILY
     Route: 042
     Dates: end: 202305
  2. CALCIUM CHLORIDE [Suspect]
     Active Substance: CALCIUM CHLORIDE
     Indication: Parenteral nutrition
     Dosage: 5 DAYS A WEEK
     Route: 065
     Dates: end: 202305
  3. CALCIUM CHLORIDE [Suspect]
     Active Substance: CALCIUM CHLORIDE
     Indication: Product used for unknown indication
     Dosage: SATURDAY AND WEDNESDAY EVERY WEEK, 12-HOUR DAILY INFUSION
     Route: 065
     Dates: end: 202305
  4. CERNEVIT [Suspect]
     Active Substance: VITAMINS
     Indication: Product used for unknown indication
     Dosage: SATURDAY AND WEDNESDAY EVERY WEEK, 12-HOUR DAILY INFUSION
     Route: 065
     Dates: end: 202305
  5. CERNEVIT [Suspect]
     Active Substance: VITAMINS
     Indication: Parenteral nutrition
     Dosage: 5 DAYS A WEEK
     Route: 065
     Dates: end: 202305
  6. DEXTROSE [Suspect]
     Active Substance: DEXTROSE\DEXTROSE MONOHYDRATE
     Indication: Parenteral nutrition
     Dosage: 5 DAYS A WEEK
     Route: 065
     Dates: end: 202305
  7. DEXTROSE [Suspect]
     Active Substance: DEXTROSE\DEXTROSE MONOHYDRATE
     Indication: Product used for unknown indication
     Dosage: SATURDAY AND WEDNESDAY EVERY WEEK, 12-HOUR DAILY INFUSION
     Route: 065
     Dates: end: 202305
  8. MAGNESIUM SULFATE [Suspect]
     Active Substance: MAGNESIUM SULFATE
     Indication: Product used for unknown indication
     Dosage: SATURDAY AND WEDNESDAY EVERY WEEK, 12-HOUR DAILY INFUSION
     Route: 065
     Dates: end: 202305
  9. MAGNESIUM SULFATE [Suspect]
     Active Substance: MAGNESIUM SULFATE
     Indication: Parenteral nutrition
     Dosage: 5 DAYS A WEEK
     Route: 065
     Dates: end: 202305
  10. IRON\MINERALS\POTASSIUM IOD\SODIUM FLUORIDE\SODIUM MOLYBDATE\SODIUM SE [Suspect]
     Active Substance: IRON\MINERALS\POTASSIUM IOD\SODIUM FLUORIDE\SODIUM MOLYBDATE\SODIUM SELENITE\ZINC
     Indication: Parenteral nutrition
     Dosage: 5 DAYS A WEEK
     Route: 065
     Dates: end: 202305
  11. IRON\MINERALS\POTASSIUM IOD\SODIUM FLUORIDE\SODIUM MOLYBDATE\SODIUM SE [Suspect]
     Active Substance: IRON\MINERALS\POTASSIUM IOD\SODIUM FLUORIDE\SODIUM MOLYBDATE\SODIUM SELENITE\ZINC
     Indication: Product used for unknown indication
     Dosage: SATURDAY AND WEDNESDAY EVERY WEEK, 12-HOUR DAILY INFUSION
     Route: 065
     Dates: end: 202305
  12. POTASSIUM CHLORIDE [Suspect]
     Active Substance: POTASSIUM CHLORIDE
     Indication: Parenteral nutrition
     Dosage: 5 DAYS A WEEK
     Route: 065
     Dates: end: 202305
  13. POTASSIUM CHLORIDE [Suspect]
     Active Substance: POTASSIUM CHLORIDE
     Indication: Product used for unknown indication
     Dosage: SATURDAY AND WEDNESDAY EVERY WEEK, 12-HOUR DAILY INFUSION
     Route: 065
     Dates: end: 202305
  14. SODIUM CHLORIDE [Suspect]
     Active Substance: SODIUM CHLORIDE
     Indication: Medication dilution
     Dosage: 10 ML
     Route: 042
     Dates: end: 202305
  15. SODIUM CHLORIDE [Suspect]
     Active Substance: SODIUM CHLORIDE
     Indication: Parenteral nutrition
     Dosage: 5 DAYS A WEEK
     Route: 065
     Dates: end: 202305
  16. SODIUM CHLORIDE [Suspect]
     Active Substance: SODIUM CHLORIDE
     Indication: Product used for unknown indication
     Dosage: SATURDAY AND WEDNESDAY EVERY WEEK, 12-HOUR DAILY INFUSION
     Route: 065
     Dates: end: 202305
  17. SODIUM CHLORIDE [Suspect]
     Active Substance: SODIUM CHLORIDE
     Indication: Catheter management
     Dosage: UNK
     Route: 042
     Dates: end: 202305
  18. SODIUM GLYCEROPHOSPHATE [Suspect]
     Active Substance: SODIUM GLYCEROPHOSPHATE
     Indication: Product used for unknown indication
     Dosage: SATURDAY AND WEDNESDAY EVERY WEEK, 12-HOUR DAILY INFUSION
     Route: 065
     Dates: end: 202305
  19. SODIUM GLYCEROPHOSPHATE [Suspect]
     Active Substance: SODIUM GLYCEROPHOSPHATE
     Indication: Parenteral nutrition
     Dosage: 5 DAYS A WEEK
     Route: 065
     Dates: end: 202305
  20. SYNTHAMIN [Suspect]
     Active Substance: AMINO ACIDS
     Indication: Parenteral nutrition
     Dosage: 5 DAYS A WEEK
     Route: 065
     Dates: end: 202305
  21. SYNTHAMIN [Suspect]
     Active Substance: AMINO ACIDS
     Indication: Product used for unknown indication
     Dosage: SATURDAY AND WEDNESDAY EVERY WEEK, 12-HOUR DAILY INFUSION
     Route: 065
     Dates: end: 202305
  22. WATER FOR INJECTION [Suspect]
     Active Substance: WATER
     Indication: Product used for unknown indication
     Dosage: SATURDAY AND WEDNESDAY EVERY WEEK, 12-HOUR DAILY INFUSION
     Route: 065
     Dates: end: 202305
  23. WATER FOR INJECTION [Suspect]
     Active Substance: WATER
     Indication: Parenteral nutrition
     Dosage: 5 DAYS A WEEK
     Route: 065
     Dates: end: 202305
  24. WATER FOR INJECTION [Suspect]
     Active Substance: WATER
     Indication: Parenteral nutrition
     Dosage: 5 DAYS A WEEK
     Route: 065
     Dates: end: 202305
  25. WATER FOR INJECTION [Suspect]
     Active Substance: WATER
     Indication: Product used for unknown indication
     Dosage: SATURDAY AND WEDNESDAY EVERY WEEK, 12-HOUR DAILY INFUSION
     Route: 065
     Dates: end: 202305

REACTIONS (2)
  - Tremor [Unknown]
  - Product quality issue [Unknown]

NARRATIVE: CASE EVENT DATE: 20230508
